FAERS Safety Report 8823348 (Version 1)
Quarter: 2012Q4

REPORT INFORMATION
  Report Type: 
  Country: US (occurrence: US)
  Receive Date: 20121003
  Receipt Date: 20121003
  Transmission Date: 20130627
  Serious: No
  Sender: FDA-Public Use
  Company Number: US-009507513-1209USA010616

PATIENT
  Age: 30 Year
  Sex: Male

DRUGS (5)
  1. EMEND [Suspect]
     Indication: CHEMOTHERAPY
     Route: 048
  2. IFOSFAMIDE [Concomitant]
  3. CARBOPLATIN [Concomitant]
  4. ETOPOSIDE [Concomitant]
  5. MESNA [Concomitant]

REACTIONS (1)
  - Hiccups [Unknown]
